FAERS Safety Report 11052967 (Version 2)
Quarter: 2015Q2

REPORT INFORMATION
  Report Type: Spontaneous
  Country: FR (occurrence: None)
  Receive Date: 20150417
  Receipt Date: 20150619
  Transmission Date: 20150821
  Serious: Yes (Hospitalization, Other)
  Sender: FDA-Public Use
  Company Number: FR-H14001-15-00554

PATIENT
  Age: 57 Year
  Sex: Male
  Weight: 72.03 kg

DRUGS (3)
  1. CERUBIDINE [Suspect]
     Active Substance: DAUNORUBICIN HYDROCHLORIDE
     Indication: ACUTE MYELOID LEUKAEMIA
     Route: 041
     Dates: start: 20100603, end: 20100606
  2. MYLOTARG [Suspect]
     Active Substance: GEMTUZUMAB OZOGAMICIN
     Indication: ACUTE MYELOID LEUKAEMIA
     Dosage: 5 MG, ON DAY 1, DAY 4 AND DAY 7, INTRAVENOUS DRIP
     Route: 041
     Dates: start: 20100603, end: 20100609
  3. ARACYTINE (CYTARABINE) (UNKNOWN) (CYTARABINE)? [Suspect]
     Active Substance: CYTARABINE
     Indication: ACUTE MYELOID LEUKAEMIA
     Route: 041
     Dates: start: 20100603, end: 20100609

REACTIONS (7)
  - Febrile bone marrow aplasia [None]
  - Thrombocytopenia [None]
  - Pseudomonas test positive [None]
  - Aspergillus test positive [None]
  - Pneumonia [None]
  - Fungal infection [None]
  - Staphylococcal sepsis [None]

NARRATIVE: CASE EVENT DATE: 2010
